FAERS Safety Report 6524074-7 (Version None)
Quarter: 2009Q4

REPORT INFORMATION
  Report Type: 
  Country: None (occurrence: None)
  Receive Date: 20091231
  Receipt Date: 20091222
  Transmission Date: 20100525
  Serious: Yes (Hospitalization)
  Sender: FDA-Public Use
  Company Number: GB-ABBOTT-08P-167-0489323-00

PATIENT
  Age: 39 Year
  Sex: Female

DRUGS (8)
  1. CLARITHROMYCIN [Suspect]
     Indication: LOWER RESPIRATORY TRACT INFECTION
     Route: 048
     Dates: start: 20080606
  2. CLARITHROMYCIN [Suspect]
     Indication: BRONCHOSPASM
  3. PREDNISOLONE [Suspect]
     Indication: LOWER RESPIRATORY TRACT INFECTION
     Dates: start: 20080529, end: 20080615
  4. PREDNISOLONE [Suspect]
     Indication: BRONCHOSPASM
  5. CHLORPROMAZINE [Concomitant]
     Indication: DRUG USE FOR UNKNOWN INDICATION
     Dosage: 25 MG; DOSE REDUCING
     Dates: start: 20080616, end: 20080630
  6. DIAZEPAM [Concomitant]
     Indication: EMOTIONAL DISTRESS
     Dates: start: 20080616, end: 20080630
  7. PREDNISOLONE [Concomitant]
     Dosage: REDUCING DOSE
  8. PREDNISOLONE [Concomitant]

REACTIONS (6)
  - AMNESIA [None]
  - APHASIA [None]
  - DEPRESSED LEVEL OF CONSCIOUSNESS [None]
  - DISORIENTATION [None]
  - ENCEPHALITIS VIRAL [None]
  - PSYCHOTIC DISORDER [None]
